FAERS Safety Report 10038765 (Version 2)
Quarter: 2014Q1

REPORT INFORMATION
  Report Type: Spontaneous
  Country: JP (occurrence: JP)
  Receive Date: 20140326
  Receipt Date: 20140326
  Transmission Date: 20141002
  Serious: Yes (Hospitalization)
  Sender: FDA-Public Use
  Company Number: JP-BAYER-2014-039721

PATIENT
  Age: 64 Year
  Sex: Female

DRUGS (5)
  1. ACETYLSALICYLIC ACID({=100 MG) [Suspect]
     Indication: THROMBOSIS PROPHYLAXIS
     Dosage: DAILY DOSE 100 MG
     Route: 048
  2. CLOPIDOGREL SULFATE [Interacting]
     Indication: THROMBOSIS PROPHYLAXIS
     Dosage: DAILY DOSE 75 MG
     Route: 048
  3. CLOPIDOGREL SULFATE [Interacting]
     Indication: CEREBELLAR INFARCTION
     Dosage: DAILY DOSE 50 MG
     Route: 048
  4. ARGATROBAN [Interacting]
  5. RT-PA [Interacting]
     Indication: EMBOLISM
     Dosage: UNK
     Route: 042

REACTIONS (3)
  - Cerebral artery embolism [None]
  - Cerebral haemorrhage [None]
  - Labelled drug-drug interaction medication error [None]
